FAERS Safety Report 6003354-8 (Version None)
Quarter: 2008Q4

REPORT INFORMATION
  Report Type: 
  Country: None (occurrence: None)
  Receive Date: 20081215
  Receipt Date: 20081215
  Transmission Date: 20090506
  Serious: Yes (Other)
  Sender: FDA-Public Use
  Company Number: None

PATIENT
  Age: 54 Year
  Sex: Female
  Weight: 54.4316 kg

DRUGS (1)
  1. FLOMAX [Suspect]
     Indication: POLLAKIURIA
     Dosage: 1 CAPSULE 1X DAILY PO
     Route: 048
     Dates: start: 20080815, end: 20080915

REACTIONS (8)
  - ANAEMIA [None]
  - DRY SKIN [None]
  - PRURITUS [None]
  - RASH [None]
  - SKIN EXFOLIATION [None]
  - SKIN IRRITATION [None]
  - TRANSIENT ISCHAEMIC ATTACK [None]
  - URTICARIA [None]
